FAERS Safety Report 9243122 (Version 1)
Quarter: 2013Q2

REPORT INFORMATION
  Report Type: Spontaneous
  Country: FR (occurrence: FR)
  Receive Date: 20130419
  Receipt Date: 20130419
  Transmission Date: 20140414
  Serious: Yes (Hospitalization)
  Sender: FDA-Public Use
  Company Number: FR-PFIZER INC-2013116923

PATIENT
  Age: 40 Year
  Sex: Female

DRUGS (1)
  1. MINIDRIL [Suspect]
     Indication: CONTRACEPTION
     Dosage: (150UG, 30UG), UNK CYCLIC
     Route: 048
     Dates: start: 2001, end: 20130105

REACTIONS (1)
  - Dysaesthesia [Recovered/Resolved]
